FAERS Safety Report 6537963-4 (Version None)
Quarter: 2010Q1

REPORT INFORMATION
  Report Type: 
  Country: None (occurrence: None)
  Receive Date: 20100114
  Receipt Date: 20100108
  Transmission Date: 20100710
  Serious: Yes (Hospitalization, Congenital Anomaly)
  Sender: FDA-Public Use
  Company Number: DK-WYE-G05069909

PATIENT
  Sex: Male
  Weight: 3 kg

DRUGS (1)
  1. EFFEXOR [Suspect]
     Indication: DEPRESSION
     Route: 064
     Dates: start: 20090201, end: 20091101

REACTIONS (6)
  - ASTHENIA [None]
  - DRUG EXPOSURE DURING PREGNANCY [None]
  - DRUG WITHDRAWAL SYNDROME NEONATAL [None]
  - FAILURE TO THRIVE [None]
  - HYPOGLYCAEMIA NEONATAL [None]
  - HYPOTONIA NEONATAL [None]
